FAERS Safety Report 5973065-3 (Version None)
Quarter: 2008Q4

REPORT INFORMATION
  Report Type: 
  Country: None (occurrence: None)
  Receive Date: 20081201
  Receipt Date: 20081118
  Transmission Date: 20090506
  Serious: Yes (Hospitalization)
  Sender: FDA-Public Use
  Company Number: AU-ELI_LILLY_AND_COMPANY-AU200806004512

PATIENT
  Sex: Male

DRUGS (3)
  1. STRATTERA [Suspect]
     Indication: ATTENTION DEFICIT/HYPERACTIVITY DISORDER
     Dosage: 40-60 MG, DAILY (1/D)
     Route: 048
     Dates: start: 20080602, end: 20080619
  2. ALCOHOL [Concomitant]
  3. MERSYNDOL [Concomitant]
     Indication: PYREXIA

REACTIONS (8)
  - ABDOMINAL PAIN UPPER [None]
  - DYSPNOEA [None]
  - LYMPHADENOPATHY [None]
  - NASAL CONGESTION [None]
  - NAUSEA [None]
  - OROPHARYNGEAL PAIN [None]
  - PANCREATITIS VIRAL [None]
  - PYREXIA [None]
